FAERS Safety Report 8302589-9 (Version None)
Quarter: 2012Q2

REPORT INFORMATION
  Report Type: 
  Country: None (occurrence: None)
  Receive Date: 20120420
  Receipt Date: 20120410
  Transmission Date: 20120825
  Serious: Yes (Hospitalization, Other)
  Sender: FDA-Public Use
  Company Number: PL-ROCHE-1058708

PATIENT
  Age: 58 Year
  Sex: Male

DRUGS (31)
  1. VINCRISTINE [Concomitant]
     Route: 042
     Dates: start: 20120323
  2. CYCLOPHOSPHAMIDE [Concomitant]
     Route: 042
     Dates: start: 20120323
  3. SOLU-MEDROL [Concomitant]
     Route: 042
  4. MABTHERA [Suspect]
     Route: 042
     Dates: start: 20120120
  5. CYCLOPHOSPHAMIDE [Concomitant]
     Route: 042
     Dates: start: 20120120
  6. VINCRISTINE [Concomitant]
     Route: 042
     Dates: start: 20111231
  7. DOXORUBICIN HCL [Concomitant]
     Route: 042
     Dates: start: 20120120
  8. DOXORUBICIN HCL [Concomitant]
     Route: 042
     Dates: start: 20120302
  9. PREDNISOLONE TABS [Concomitant]
     Route: 048
     Dates: start: 20111231
  10. DOXORUBICIN HCL [Concomitant]
     Route: 042
     Dates: start: 20111112
  11. DOXORUBICIN HCL [Concomitant]
     Route: 042
     Dates: start: 20111119
  12. PREDNISOLONE TABS [Concomitant]
     Route: 048
     Dates: start: 20111119
  13. MABTHERA [Suspect]
     Route: 042
     Dates: start: 20111119
  14. MABTHERA [Suspect]
     Route: 042
     Dates: start: 20120323
  15. VINCRISTINE [Concomitant]
     Route: 042
     Dates: start: 20111112
  16. CYCLOPHOSPHAMIDE [Concomitant]
     Route: 042
     Dates: start: 20111119
  17. CYCLOPHOSPHAMIDE [Concomitant]
     Route: 042
     Dates: start: 20111231
  18. CYCLOPHOSPHAMIDE [Concomitant]
     Route: 042
     Dates: start: 20120302
  19. VINCRISTINE [Concomitant]
     Route: 042
     Dates: start: 20120120
  20. VINCRISTINE [Concomitant]
     Route: 042
     Dates: start: 20120302
  21. PREDNISOLONE TABS [Concomitant]
     Route: 048
     Dates: start: 20120323
  22. MABTHERA [Suspect]
     Route: 042
     Dates: start: 20111231
  23. VINCRISTINE [Concomitant]
     Route: 042
     Dates: start: 20111119
  24. DOXORUBICIN HCL [Concomitant]
     Route: 042
     Dates: start: 20111231
  25. PREDNISOLONE TABS [Concomitant]
     Route: 048
     Dates: start: 20120302
  26. MABTHERA [Suspect]
     Indication: DIFFUSE LARGE B-CELL LYMPHOMA
     Route: 042
     Dates: start: 20111112
  27. MABTHERA [Suspect]
     Route: 042
     Dates: start: 20120302
  28. CYCLOPHOSPHAMIDE [Concomitant]
     Route: 042
     Dates: start: 20111112
  29. DOXORUBICIN HCL [Concomitant]
     Route: 042
     Dates: start: 20120323
  30. PREDNISOLONE TABS [Concomitant]
     Route: 048
     Dates: start: 20111112
  31. PREDNISOLONE TABS [Concomitant]
     Route: 048
     Dates: start: 20120120

REACTIONS (5)
  - VOMITING [None]
  - GASTROINTESTINAL OBSTRUCTION [None]
  - CLOSTRIDIAL INFECTION [None]
  - NAUSEA [None]
  - ABDOMINAL PAIN [None]
